FAERS Safety Report 21096218 (Version 1)
Quarter: 2022Q3

REPORT INFORMATION
  Report Type: Spontaneous
  Country: US (occurrence: US)
  Receive Date: 20220718
  Receipt Date: 20220718
  Transmission Date: 20221027
  Serious: Yes (Hospitalization, Other)
  Sender: FDA-Public Use
  Company Number: US-ALLERGAN-2222561US

PATIENT
  Sex: Female

DRUGS (1)
  1. BOTOX [Suspect]
     Active Substance: ONABOTULINUMTOXINA
     Indication: Neurogenic bladder
     Dosage: UNK, SINGLE

REACTIONS (7)
  - Urinary cystectomy [Unknown]
  - Bladder pain [Recovered/Resolved]
  - Cystitis noninfective [Recovered/Resolved]
  - Bladder spasm [Recovered/Resolved]
  - Condition aggravated [Recovered/Resolved]
  - Neurogenic bladder [Recovered/Resolved]
  - Urinary retention [Recovered/Resolved]

NARRATIVE: CASE EVENT DATE: 20220115
